FAERS Safety Report 7034556-X (Version None)
Quarter: 2010Q4

REPORT INFORMATION
  Report Type: 
  Country: None (occurrence: None)
  Receive Date: 20101008
  Receipt Date: 20101006
  Transmission Date: 20110411
  Serious: Yes (Other)
  Sender: FDA-Public Use
  Company Number: US-BRISTOL-MYERS SQUIBB COMPANY-15321771

PATIENT
  Age: 88 Year
  Sex: Male
  Weight: 86 kg

DRUGS (4)
  1. COUMADIN [Suspect]
     Indication: MYOCARDIAL INFARCTION
     Dates: start: 20100501
  2. LISINOPRIL [Concomitant]
  3. OMEPRAZOLE [Concomitant]
  4. VITAMINS [Concomitant]

REACTIONS (1)
  - HIP SURGERY [None]
